FAERS Safety Report 9193656 (Version 2)
Quarter: 2013Q2

REPORT INFORMATION
  Report Type: Spontaneous
  Country: JP (occurrence: JP)
  Receive Date: 20130327
  Receipt Date: 20130412
  Transmission Date: 20140414
  Serious: Yes (Other)
  Sender: FDA-Public Use
  Company Number: JP-GLAXOSMITHKLINE-B0877197A

PATIENT
  Age: 66 Year
  Sex: Female

DRUGS (13)
  1. VALTREX [Suspect]
     Indication: HERPES SIMPLEX
     Dosage: 500MG TWICE PER DAY
     Route: 048
     Dates: start: 20130318, end: 20130319
  2. VALTREX [Suspect]
     Indication: HERPES SIMPLEX
     Dosage: 250MG PER DAY
     Route: 048
     Dates: start: 20130319, end: 20130323
  3. TANKARU [Concomitant]
     Indication: BLOOD PHOSPHORUS INCREASED
     Dosage: 1000MG THREE TIMES PER DAY
     Route: 048
  4. OLMETEC [Concomitant]
     Route: 048
  5. ADALAT-CR [Concomitant]
     Route: 048
  6. SELBEX [Concomitant]
     Dosage: 20MG PER DAY
     Route: 048
  7. LIPITOR [Concomitant]
     Dosage: 10MG PER DAY
     Route: 048
  8. ARTIST [Concomitant]
     Dosage: 10MG PER DAY
     Route: 048
  9. ALESION [Concomitant]
     Dosage: 20MG PER DAY
     Route: 048
  10. TAKEPRON [Concomitant]
     Dosage: 30MG PER DAY
     Route: 048
  11. AMLODIN [Concomitant]
     Dosage: 5MG PER DAY
     Route: 048
  12. MYSLEE [Concomitant]
     Dosage: 10MG PER DAY
     Route: 048
  13. CARDENALIN [Concomitant]
     Dosage: 4MG PER DAY
     Route: 048

REACTIONS (2)
  - Toxic encephalopathy [Recovered/Resolved]
  - Feeling abnormal [Recovered/Resolved]
